FAERS Safety Report 13232197 (Version 1)
Quarter: 2017Q1

REPORT INFORMATION
  Report Type: Report from Study
  Country: KR (occurrence: KR)
  Receive Date: 20170214
  Receipt Date: 20170214
  Transmission Date: 20170428
  Serious: Yes (Death)
  Sender: FDA-Public Use
  Company Number: KR-MUNDIPHARMA DS AND PHARMACOVIGILANCE-GBR-2017-0043303

PATIENT
  Age: 68 Year
  Sex: Male

DRUGS (2)
  1. TARGIN [Suspect]
     Active Substance: NALOXONE HYDROCHLORIDE\OXYCODONE HYDROCHLORIDE
     Indication: PAIN
     Dosage: 60/30 MG, DAILY
     Route: 048
     Dates: start: 201610, end: 201701
  2. IR CODON [Suspect]
     Active Substance: OXYCODONE HYDROCHLORIDE
     Indication: PAIN
     Dosage: 15 MG, DAILY
     Route: 048
     Dates: start: 201610, end: 201701

REACTIONS (1)
  - Disease progression [Fatal]
